FAERS Safety Report 25870631 (Version 2)
Quarter: 2025Q4

REPORT INFORMATION
  Report Type: Spontaneous
  Country: EU (occurrence: EU)
  Receive Date: 20251001
  Receipt Date: 20251110
  Transmission Date: 20260119
  Serious: Yes (Death, Congenital Anomaly, Other)
  Sender: SANOFI AVENTIS
  Company Number: None

PATIENT

DRUGS (1)
  1. DUPIXENT [Suspect]
     Active Substance: DUPILUMAB
     Indication: Dermatitis atopic
     Dosage: 300 MG, QOW
     Route: 064
     Dates: start: 20250313, end: 202507

REACTIONS (3)
  - Congenital musculoskeletal disorder [Fatal]
  - Osteochondrodysplasia [Not Recovered/Not Resolved]
  - Foetal exposure during pregnancy [Unknown]

NARRATIVE: CASE EVENT DATE: 20250101
